FAERS Safety Report 7933427-1 (Version None)
Quarter: 2011Q4

REPORT INFORMATION
  Report Type: 
  Country: None (occurrence: None)
  Receive Date: 20111122
  Receipt Date: 20111118
  Transmission Date: 20120403
  Serious: Yes (Hospitalization)
  Sender: FDA-Public Use
  Company Number: FR-SANOFI-AVENTIS-2011SA076026

PATIENT
  Age: 45 Year
  Sex: Female

DRUGS (7)
  1. GENTAMICIN SULFATE [Suspect]
     Indication: SEPSIS
     Route: 065
     Dates: start: 20110725, end: 20110804
  2. OXYCODONE HCL [Suspect]
     Route: 048
     Dates: start: 20110726
  3. LEVOFLOXACIN [Suspect]
     Route: 065
     Dates: start: 20110714, end: 20110722
  4. HYDROXYZINE [Concomitant]
     Indication: ANXIETY
     Route: 048
     Dates: start: 20110731
  5. LOVENOX [Suspect]
     Route: 058
     Dates: start: 20110726, end: 20110808
  6. TARGOCID [Suspect]
     Route: 065
     Dates: start: 20110725, end: 20110803
  7. PIPERACILLIN AND TAZOBACTAM [Suspect]
     Dates: start: 20110731, end: 20110812

REACTIONS (7)
  - DRUG RASH WITH EOSINOPHILIA AND SYSTEMIC SYMPTOMS [None]
  - EOSINOPHILIA [None]
  - PYREXIA [None]
  - DERMATITIS EXFOLIATIVE [None]
  - LYMPHADENOPATHY [None]
  - CYTOLYTIC HEPATITIS [None]
  - PANCYTOPENIA [None]
